FAERS Safety Report 20145799 (Version 1)
Quarter: 2021Q4

REPORT INFORMATION
  Report Type: Spontaneous
  Country: US (occurrence: None)
  Receive Date: 20211203
  Receipt Date: 20211203
  Transmission Date: 20220303
  Serious: Yes (Hospitalization, Other)
  Sender: FDA-Public Use
  Company Number: None

PATIENT
  Age: 50 Year
  Sex: Male
  Weight: 98.1 kg

DRUGS (9)
  1. BARICITINIB [Suspect]
     Active Substance: BARICITINIB
     Indication: COVID-19
     Dosage: FREQUENCY : DAILY;?
     Route: 048
     Dates: start: 20211118, end: 20211121
  2. dexmedetomidine 400 mcg/100 mL [Concomitant]
     Dates: start: 20211117, end: 20211121
  3. enoxaparin 40 mg BID [Concomitant]
     Dates: start: 20211116, end: 20211121
  4. REMDESIVIR [Concomitant]
     Active Substance: REMDESIVIR
     Dates: start: 20211116, end: 20211125
  5. zinc sulfate 220 mg [Concomitant]
     Dates: start: 20211118
  6. ACETAMINOPHEN [Concomitant]
     Active Substance: ACETAMINOPHEN
     Dates: start: 20211116
  7. ACYCLOVIR [Concomitant]
     Active Substance: ACYCLOVIR
     Dates: start: 20211118
  8. ALPRAZOLAM [Concomitant]
     Active Substance: ALPRAZOLAM
     Dates: start: 20211119
  9. dexamethasone 10 mg [Concomitant]
     Dates: start: 20211116

REACTIONS (1)
  - Embolism venous [None]

NARRATIVE: CASE EVENT DATE: 20211121
